FAERS Safety Report 6985037-0 (Version None)
Quarter: 2010Q3

REPORT INFORMATION
  Report Type: 
  Country: None (occurrence: None)
  Receive Date: 20100915
  Receipt Date: 20100906
  Transmission Date: 20110219
  Serious: Yes (Other)
  Sender: FDA-Public Use
  Company Number: PHHY2010IL58995

PATIENT
  Age: 18 Year
  Sex: Male

DRUGS (2)
  1. SANDOSTATIN LAR [Suspect]
     Indication: ACROMEGALY
     Dosage: 30 MG EVERY 4 WEEKS
  2. SANDOSTATIN LAR [Suspect]
     Dosage: 20 MG, UNK

REACTIONS (2)
  - DECREASED APPETITE [None]
  - WEIGHT DECREASED [None]
